FAERS Safety Report 20928625 (Version 5)
Quarter: 2022Q3

REPORT INFORMATION
  Report Type: Spontaneous
  Country: IQ (occurrence: IQ)
  Receive Date: 20220607
  Receipt Date: 20220922
  Transmission Date: 20221027
  Serious: Yes (Death, Hospitalization, Disabling, Other)
  Sender: FDA-Public Use
  Company Number: IQ-SA-SAC20220420001396

PATIENT
  Age: 1 Year
  Sex: Male
  Weight: 9.8 kg

DRUGS (4)
  1. MYOZYME [Suspect]
     Active Substance: ALGLUCOSIDASE ALFA
     Indication: Glycogen storage disease type II
     Dosage: 4 DF, QOW
     Route: 042
     Dates: start: 20220301, end: 20220419
  2. FUROSEMIDE [Suspect]
     Active Substance: FUROSEMIDE
     Indication: Hypervolaemia
     Dosage: UNK
     Dates: start: 2021, end: 20220419
  3. FUROSEMIDE [Suspect]
     Active Substance: FUROSEMIDE
     Indication: Cardiomyopathy
  4. CAPOTEN [Suspect]
     Active Substance: CAPTOPRIL
     Indication: Cardiomyopathy
     Dosage: 12.5 MG X1
     Route: 048
     Dates: start: 202110, end: 20220419

REACTIONS (7)
  - Muscular weakness [Fatal]
  - Hypotonia [Fatal]
  - Cardiomegaly [Fatal]
  - Respiratory failure [Fatal]
  - Infection [Unknown]
  - Disability [Unknown]
  - Hypersensitivity [Fatal]

NARRATIVE: CASE EVENT DATE: 20220419
